FAERS Safety Report 22336841 (Version 1)
Quarter: 2023Q2

REPORT INFORMATION
  Report Type: Spontaneous
  Country: US (occurrence: US)
  Receive Date: 20230518
  Receipt Date: 20230518
  Transmission Date: 20230721
  Serious: No
  Sender: FDA-Public Use
  Company Number: US-Accord-264986

PATIENT
  Age: 49 Year
  Sex: Male
  Weight: 97.98 kg

DRUGS (2)
  1. TADALAFIL [Suspect]
     Active Substance: TADALAFIL
     Indication: Erectile dysfunction
     Dosage: ONE TABLET EVERY OTHER DAY (3 TO 4 TIMES PER WEEK)
     Route: 048
     Dates: start: 20210417, end: 202205
  2. TESTOSTERONE [Concomitant]
     Active Substance: TESTOSTERONE
     Route: 058
     Dates: start: 202104

REACTIONS (1)
  - Drug effect less than expected [Unknown]
